FAERS Safety Report 7931382-1 (Version None)
Quarter: 2011Q4

REPORT INFORMATION
  Report Type: 
  Country: None (occurrence: None)
  Receive Date: 20111121
  Receipt Date: 20111115
  Transmission Date: 20120403
  Serious: No
  Sender: FDA-Public Use
  Company Number: US-B.I. PHARMACEUTICALS,INC./RIDGEFIELD-2011-BP-26241BP

PATIENT
  Sex: Male

DRUGS (12)
  1. CO Q10 [Concomitant]
     Indication: ROUTINE HEALTH MAINTENANCE
     Dosage: 100 MG
     Route: 048
     Dates: start: 20100101
  2. SINEMET [Concomitant]
     Indication: PARKINSON'S DISEASE
     Route: 048
     Dates: start: 20060101
  3. LABETALOL HCL [Concomitant]
     Indication: HYPERTENSION
     Dosage: 600 MG
     Route: 048
     Dates: start: 20010101
  4. GLIMEPIRIDE [Concomitant]
     Indication: TYPE 2 DIABETES MELLITUS
     Dosage: 1 MG
     Route: 048
     Dates: start: 20060101
  5. METOLAZONE [Concomitant]
     Indication: OEDEMA PERIPHERAL
     Route: 048
     Dates: start: 20111001
  6. SIMVASTATIN [Concomitant]
     Indication: BLOOD CHOLESTEROL INCREASED
     Dosage: 20 MG
     Route: 048
     Dates: start: 20100101
  7. LOSARTAN [Concomitant]
     Indication: HYPERTENSION
     Dosage: 100 MG
     Route: 048
     Dates: start: 20100101
  8. PRILOSEC [Concomitant]
     Indication: GASTROOESOPHAGEAL REFLUX DISEASE
     Route: 048
     Dates: start: 20060101
  9. LASIX [Concomitant]
     Indication: OEDEMA PERIPHERAL
     Dosage: 60 MG
     Route: 048
     Dates: start: 20100101
  10. MIRAPEX [Suspect]
     Indication: PARKINSON'S DISEASE
     Dosage: 0.75 MG
     Route: 048
     Dates: start: 20111111
  11. VITAMIN D [Concomitant]
     Indication: ROUTINE HEALTH MAINTENANCE
     Dates: start: 20100101
  12. ASCORBIC ACID [Concomitant]
     Indication: ROUTINE HEALTH MAINTENANCE
     Dates: start: 20100101

REACTIONS (1)
  - GAIT DISTURBANCE [None]
